FAERS Safety Report 9807570 (Version 1)
Quarter: 2014Q1

REPORT INFORMATION
  Report Type: Spontaneous
  Country: US (occurrence: US)
  Receive Date: 20140110
  Receipt Date: 20140110
  Transmission Date: 20141002
  Serious: No
  Sender: FDA-Public Use
  Company Number: US-SANOFI-AVENTIS-2013SA040322

PATIENT
  Sex: Female
  Weight: 43 kg

DRUGS (4)
  1. PLAVIX [Suspect]
     Dates: start: 201202
  2. PERCOCET [Suspect]
     Dosage: DOSE: 5/325
  3. PHENERGAN [Suspect]
  4. VITAMIN D [Concomitant]
     Dosage: DOSE:50000 UNIT(S)

REACTIONS (6)
  - Dry skin [Unknown]
  - Pruritus [Unknown]
  - Weight decreased [Unknown]
  - Anaemia [Unknown]
  - Dehydration [Unknown]
  - Hypovitaminosis [Unknown]
